FAERS Safety Report 18419458 (Version 1)
Quarter: 2020Q4

REPORT INFORMATION
  Report Type: Spontaneous
  Country: US (occurrence: US)
  Receive Date: 20201023
  Receipt Date: 20201023
  Transmission Date: 20210114
  Serious: Yes (Hospitalization)
  Sender: FDA-Public Use
  Company Number: None

PATIENT
  Age: 55 Year
  Sex: Male

DRUGS (1)
  1. OCTREOTIDE SD 1ML PF SYR 50MCG/ML MYLAN INSTITUTIONAL [Suspect]
     Active Substance: OCTREOTIDE
     Indication: LYMPHADENOPATHY
     Route: 058
     Dates: start: 20201005, end: 20201012

REACTIONS (5)
  - Dyspnoea [None]
  - Abdominal pain [None]
  - Rash [None]
  - Yellow skin [None]
  - Hepatic function abnormal [None]

NARRATIVE: CASE EVENT DATE: 20201011
